FAERS Safety Report 5945917-1 (Version None)
Quarter: 2008Q4

REPORT INFORMATION
  Report Type: 
  Country: None (occurrence: None)
  Receive Date: 20081105
  Receipt Date: 20081028
  Transmission Date: 20090506
  Serious: Yes (Other)
  Sender: FDA-Public Use
  Company Number: 2008SP021898

PATIENT
  Age: 84 Year
  Sex: Male

DRUGS (5)
  1. AERIUS (DESLORATADINE) (DESLORATADINE) (5 MG) [Suspect]
     Indication: CRYING
     Dosage: 5 MG; QD; PO
     Route: 048
  2. AERIUS (DESLORATADINE) (DESLORATADINE) (5 MG) [Suspect]
     Indication: NASAL CONGESTION
     Dosage: 5 MG; QD; PO
     Route: 048
  3. FLUDEX [Concomitant]
  4. VASTAREL [Concomitant]
  5. VITALUX (VITAMIN AND MINERAL SUPPLEMENT) [Concomitant]

REACTIONS (2)
  - HYPOTENSION [None]
  - LOSS OF CONSCIOUSNESS [None]
